FAERS Safety Report 16705519 (Version 1)
Quarter: 2019Q4

REPORT INFORMATION
  Report Type: Spontaneous
  Country: US (occurrence: US)
  Receive Date: 20190814
  Receipt Date: 20190814
  Transmission Date: 20200122
  Serious: Yes (Hospitalization)
  Sender: FDA-Public Use
  Company Number: None

PATIENT
  Age: 78 Year
  Sex: Male
  Weight: 75.6 kg

DRUGS (2)
  1. HYDROXYUREA. [Concomitant]
     Active Substance: HYDROXYUREA
  2. JAKAFI [Suspect]
     Active Substance: RUXOLITINIB
     Indication: POLYCYTHAEMIA VERA
     Route: 048
     Dates: start: 20190613, end: 20190621

REACTIONS (8)
  - Therapy cessation [None]
  - Hyperhidrosis [None]
  - Product availability issue [None]
  - Platelet count decreased [None]
  - Asthenia [None]
  - Body temperature decreased [None]
  - Oxygen saturation decreased [None]
  - Chest pain [None]

NARRATIVE: CASE EVENT DATE: 20190626
